FAERS Safety Report 10474169 (Version 1)
Quarter: 2014Q3

REPORT INFORMATION
  Report Type: Spontaneous
  Country: DK (occurrence: DK)
  Receive Date: 20140924
  Receipt Date: 20140924
  Transmission Date: 20150326
  Serious: Yes (Life-Threatening, Hospitalization)
  Sender: FDA-Public Use
  Company Number: DK-PFIZER INC-2014260445

PATIENT
  Age: 60 Year
  Sex: Male

DRUGS (17)
  1. ALPRAZOLAM. [Concomitant]
     Active Substance: ALPRAZOLAM
     Indication: RESTLESSNESS
     Dosage: UNK
     Route: 048
  2. ASPIRIN. [Concomitant]
     Active Substance: ASPIRIN
     Indication: ANTICOAGULANT THERAPY
     Route: 048
  3. MOVICOL [Concomitant]
     Active Substance: POLYETHYLENE GLYCOL 3350\POTASSIUM CHLORIDE\SODIUM BICARBONATE\SODIUM CHLORIDE
     Indication: CONSTIPATION
     Route: 048
  4. TEMGESIC ^ESSEX PHARMA^ [Concomitant]
     Indication: PAIN
  5. FUCIDIN [Interacting]
     Active Substance: FUSIDIC ACID
     Indication: DEVICE RELATED INFECTION
     Dosage: 500 MG, 3X/DAY
     Route: 048
     Dates: start: 20140721, end: 20140821
  6. ATORVASTATIN PFIZER [Suspect]
     Active Substance: ATORVASTATIN
     Indication: HYPERCHOLESTEROLAEMIA
     Dosage: 80 MG, 1X/DAY
     Route: 048
     Dates: start: 20140115, end: 20140824
  7. BIOCLAVID [Concomitant]
     Active Substance: AMOXICILLIN\CLAVULANIC ACID
     Indication: DEVICE RELATED INFECTION
     Dosage: 500 MG/125 MG
     Route: 048
     Dates: start: 20140721, end: 20140821
  8. KALEORID [Concomitant]
     Active Substance: POTASSIUM CHLORIDE
     Indication: MINERAL SUPPLEMENTATION
     Route: 048
  9. OMNISTAD [Concomitant]
     Indication: DYSURIA
     Dosage: 0.4 MG, UNK
     Route: 048
  10. CARDICOR [Concomitant]
     Active Substance: BISOPROLOL
     Indication: CARDIAC DISORDER
     Dosage: 2.5 MG, UNK
     Route: 048
  11. CORODIL [Concomitant]
     Active Substance: DIPYRIDAMOLE
     Indication: HYPERTENSION
     Route: 048
  12. ESOMEPRAZOLE [Concomitant]
     Active Substance: ESOMEPRAZOLE
     Indication: GASTRIC PH DECREASED
     Route: 048
  13. FURIX [Concomitant]
     Active Substance: FUROSEMIDE
     Indication: DIURETIC THERAPY
  14. NITROLINGUAL [Concomitant]
     Active Substance: NITROGLYCERIN
     Indication: ANGINA PECTORIS
     Dosage: 0.4 MG, UNK
     Route: 048
  15. CORDAN [Concomitant]
     Active Substance: AMIODARONE
     Indication: HEART RATE IRREGULAR
     Dosage: 200 MG, UNK
     Route: 048
  16. IMOCLONE [Concomitant]
     Active Substance: ZOPICLONE
     Indication: INSOMNIA
     Route: 048
  17. PINEX [Concomitant]
     Active Substance: ACETAMINOPHEN
     Indication: PAIN

REACTIONS (6)
  - Renal failure acute [Recovering/Resolving]
  - Muscle fatigue [Unknown]
  - Rhabdomyolysis [Recovering/Resolving]
  - Dialysis [Recovered/Resolved]
  - Asthenia [Unknown]
  - Drug interaction [Recovering/Resolving]

NARRATIVE: CASE EVENT DATE: 201408
